FAERS Safety Report 11878803 (Version 2)
Quarter: 2015Q4

REPORT INFORMATION
  Report Type: Spontaneous
  Country: BR (occurrence: BR)
  Receive Date: 20151230
  Receipt Date: 20151230
  Transmission Date: 20160305
  Serious: Yes (Death)
  Sender: FDA-Public Use
  Company Number: BR-ELI_LILLY_AND_COMPANY-BR201512006838

PATIENT

DRUGS (2)
  1. HUMAN INSULIN [Suspect]
     Active Substance: INSULIN HUMAN
     Indication: PRODUCT USED FOR UNKNOWN INDICATION
     Dosage: 14 IU, EACH MORNING
     Route: 064
     Dates: start: 20150515
  2. HUMAN INSULIN [Suspect]
     Active Substance: INSULIN HUMAN
     Dosage: 8 IU, QD
     Route: 064
     Dates: start: 20150515

REACTIONS (4)
  - Foetal heart rate abnormal [Fatal]
  - Hypoglycaemia [Fatal]
  - Foetal exposure during pregnancy [Recovered/Resolved]
  - Placental insufficiency [Fatal]

NARRATIVE: CASE EVENT DATE: 20150517
